FAERS Safety Report 6429326-7 (Version None)
Quarter: 2009Q4

REPORT INFORMATION
  Report Type: 
  Country: None (occurrence: None)
  Receive Date: 20091030
  Receipt Date: 20091022
  Transmission Date: 20100525
  Serious: Yes (Other)
  Sender: FDA-Public Use
  Company Number: GXKR2009US11606

PATIENT
  Age: 53 Year
  Sex: Female

DRUGS (3)
  1. RIBAVIRIN [Suspect]
     Indication: HEPATITIS C
  2. RIBAVIRIN [Suspect]
     Indication: HEPATITIS CHRONIC ACTIVE
  3. PEGINTEFERON ALFA-2A (PEGINTERFERON ALFA-2A) [Suspect]
     Indication: HEPATITIS C

REACTIONS (6)
  - ANTIPHOSPHOLIPID SYNDROME [None]
  - COAGULATION FACTOR VIII LEVEL INCREASED [None]
  - CUTANEOUS SARCOIDOSIS [None]
  - LIVEDO RETICULARIS [None]
  - SKIN INDURATION [None]
  - THROMBOPHLEBITIS SUPERFICIAL [None]
